FAERS Safety Report 9612488 (Version 1)
Quarter: 2013Q4

REPORT INFORMATION
  Report Type: Report from Study
  Country: CO (occurrence: CO)
  Receive Date: 20131010
  Receipt Date: 20131010
  Transmission Date: 20140711
  Serious: Yes (Hospitalization, Other)
  Sender: FDA-Public Use
  Company Number: CO-ABBVIE-13P-036-1155543-00

PATIENT
  Age: 59 Year
  Sex: Male
  Weight: 78 kg

DRUGS (5)
  1. HUMIRA [Suspect]
     Indication: CROHN^S DISEASE
     Dates: start: 20130215, end: 20130521
  2. HUMIRA [Suspect]
     Dates: start: 20130521
  3. HUMIRA [Suspect]
     Dates: end: 20130802
  4. MESALAZINE [Concomitant]
     Indication: PRODUCT USED FOR UNKNOWN INDICATION
  5. AZATHIOPRINE [Concomitant]
     Indication: PRODUCT USED FOR UNKNOWN INDICATION

REACTIONS (5)
  - Colon cancer stage 0 [Unknown]
  - Metastases to liver [Unknown]
  - Dysplasia [Unknown]
  - Inflammatory bowel disease [Unknown]
  - Drug ineffective [Unknown]
